FAERS Safety Report 6296280-0 (Version None)
Quarter: 2009Q3

REPORT INFORMATION
  Report Type: 
  Country: None (occurrence: None)
  Receive Date: 20090804
  Receipt Date: 20090723
  Transmission Date: 20100115
  Serious: Yes (Hospitalization)
  Sender: FDA-Public Use
  Company Number: JP-PFIZER INC-2009224403

PATIENT
  Age: 74 Year

DRUGS (11)
  1. ZITHROMAC SR [Interacting]
     Indication: BRONCHIOLITIS
     Dosage: 2000 MG, SINGLE
     Route: 048
     Dates: start: 20090602, end: 20090602
  2. SPIRIVA [Suspect]
     Indication: CHRONIC OBSTRUCTIVE PULMONARY DISEASE
     Dosage: DAILY
     Route: 055
     Dates: start: 20090602
  3. SIMVASTATIN [Interacting]
     Indication: HYPERLIPIDAEMIA
     Dosage: 5 MG, DAILY
     Route: 048
     Dates: start: 20050101, end: 20090604
  4. CEFTRIAXONE SODIUM [Concomitant]
     Indication: BRONCHIOLITIS
     Dosage: UNK
     Route: 042
     Dates: start: 20090602, end: 20090608
  5. THEOPHYLLINE [Concomitant]
     Indication: CHRONIC OBSTRUCTIVE PULMONARY DISEASE
     Dosage: UNK
     Route: 042
     Dates: start: 20090602, end: 20090606
  6. HYDROCORTISONE 10MG TAB [Concomitant]
     Indication: CHRONIC OBSTRUCTIVE PULMONARY DISEASE
     Dosage: UNK
     Route: 042
     Dates: start: 20090602, end: 20090612
  7. SALMETEROL XINAFOATE, FLUTICASONE PROPIONATE [Concomitant]
     Indication: CHRONIC OBSTRUCTIVE PULMONARY DISEASE
     Dosage: UNK
     Route: 055
     Dates: start: 20090602
  8. ASPIRIN [Concomitant]
     Dosage: UNK
     Route: 048
     Dates: start: 19940101
  9. VALSARTAN [Concomitant]
     Dosage: UNK
     Route: 048
     Dates: start: 20021201
  10. ENALAPRIL MALEATE [Concomitant]
     Dosage: UNK
     Route: 048
     Dates: start: 19940101
  11. GLIMICRON [Concomitant]
     Dosage: UNK
     Route: 048
     Dates: start: 19990101

REACTIONS (2)
  - BLOOD CREATINE PHOSPHOKINASE INCREASED [None]
  - DRUG INTERACTION [None]
